FAERS Safety Report 24836948 (Version 1)
Quarter: 2025Q1

REPORT INFORMATION
  Report Type: Spontaneous
  Country: US (occurrence: US)
  Receive Date: 20250113
  Receipt Date: 20250113
  Transmission Date: 20250409
  Serious: Yes (Other)
  Sender: AUROBINDO
  Company Number: US-MLMSERVICE-20241226-PI323999-00271-1

PATIENT
  Age: 53 Year
  Sex: Male

DRUGS (1)
  1. PREDNISONE [Suspect]
     Active Substance: PREDNISONE
     Indication: Gastroenteritis eosinophilic
     Route: 065

REACTIONS (3)
  - Tibia fracture [Unknown]
  - Osteoporosis [Unknown]
  - Osteoporotic fracture [Unknown]
